FAERS Safety Report 7970157-4 (Version None)
Quarter: 2011Q4

REPORT INFORMATION
  Report Type: 
  Country: None (occurrence: None)
  Receive Date: 20111212
  Receipt Date: 20111206
  Transmission Date: 20120403
  Serious: Yes (Death, Hospitalization)
  Sender: FDA-Public Use
  Company Number: US-SANOFI-AVENTIS-2011SA078684

PATIENT
  Age: 77 Year
  Sex: Male
  Weight: 102 kg

DRUGS (23)
  1. INVESTIGATIONAL DRUG [Suspect]
     Route: 048
     Dates: start: 20111107, end: 20111109
  2. ALLOPURINOL [Concomitant]
     Indication: GOUT
     Dates: start: 19760101
  3. VITAMIN TAB [Concomitant]
     Dosage: DOSE:1 UNIT(S)
     Dates: start: 20090101
  4. PYRIDOXINE HCL [Concomitant]
     Dosage: 50-100 MG DAILY
     Dates: start: 20111110
  5. SENNOSIDE A+B CALCIUM [Concomitant]
     Indication: CONSTIPATION
     Dates: start: 20090101
  6. METOPROLOL SUCCINATE [Concomitant]
     Indication: HYPERTENSION
     Dates: start: 20100901
  7. RANITIDINE HYDROCHLORIDE [Concomitant]
     Indication: PREMEDICATION
     Dates: start: 20111107
  8. LANSOPRAZOLE [Concomitant]
     Dates: start: 20110408
  9. TEMAZEPAM [Concomitant]
     Indication: INSOMNIA
     Dates: start: 20100401
  10. GRANISETRON HCL [Concomitant]
     Indication: PREMEDICATION
     Dates: start: 20111107
  11. FISH OIL [Concomitant]
     Dates: start: 20090101
  12. CELECOXIB [Concomitant]
     Indication: DEPRESSION
     Dates: start: 19910101
  13. GLYCERYL TRINITRATE [Concomitant]
     Indication: ANGINA PECTORIS
     Dates: start: 20100901
  14. DEXAMETHASONE ACETATE [Concomitant]
     Indication: PREMEDICATION
     Dates: start: 20111107
  15. MORPHINE SULFATE [Concomitant]
     Dates: start: 20100601
  16. MORPHINE SULFATE [Concomitant]
     Dosage: AS NEEDED
     Dates: start: 20110822
  17. PYRIDOXINE HCL [Concomitant]
     Dosage: 50-100 MG DAILY
     Dates: start: 20111110
  18. ISOSORBIDE DINITRATE [Concomitant]
     Indication: ANGINA PECTORIS
     Dates: start: 20100901
  19. PHENYLPROPANOLAMINE HYDROCHLORIDE AND PARACETAMOL AND DIPHENHYDRAMINE [Concomitant]
     Indication: PREMEDICATION
     Dates: start: 20111107
  20. DOCETAXEL [Suspect]
     Route: 041
     Dates: start: 20111107, end: 20111107
  21. MORPHINE SULFATE [Concomitant]
     Indication: BACK PAIN
     Dates: start: 20100601
  22. MORPHINE SULFATE [Concomitant]
     Dosage: AS NEEDED
     Dates: start: 20110822
  23. ZOLEDRONIC ACID [Concomitant]
     Dates: start: 20111107

REACTIONS (3)
  - DEATH [None]
  - PAIN [None]
  - PERIPHERAL SENSORY NEUROPATHY [None]
